FAERS Safety Report 17928598 (Version 21)
Quarter: 2024Q2

REPORT INFORMATION
  Report Type: Report from Study
  Country: US (occurrence: US)
  Receive Date: 20200623
  Receipt Date: 20240430
  Transmission Date: 20240716
  Serious: Yes (Other)
  Sender: FDA-Public Use
  Company Number: US-SHIRE-US202020326

PATIENT
  Age: 41 Year
  Sex: Female
  Weight: 79 kg

DRUGS (28)
  1. HUMAN IMMUNOGLOBULIN G [Suspect]
     Active Substance: HUMAN IMMUNOGLOBULIN G
     Indication: Immunodeficiency common variable
     Dosage: 22 GRAM, Q2WEEKS
     Route: 058
     Dates: start: 20200430
  2. HUMAN IMMUNOGLOBULIN G [Suspect]
     Active Substance: HUMAN IMMUNOGLOBULIN G
     Indication: Attention deficit hyperactivity disorder
     Dosage: 22 GRAM, Q2WEEKS
     Route: 058
     Dates: start: 20200501
  3. HUMAN IMMUNOGLOBULIN G [Suspect]
     Active Substance: HUMAN IMMUNOGLOBULIN G
     Dosage: 14 GRAM, 1/WEEK
     Route: 058
     Dates: start: 20220405
  4. HUMAN IMMUNOGLOBULIN G [Suspect]
     Active Substance: HUMAN IMMUNOGLOBULIN G
     Dosage: 12 GRAM, 1/WEEK
     Route: 058
  5. HUMAN IMMUNOGLOBULIN G [Suspect]
     Active Substance: HUMAN IMMUNOGLOBULIN G
     Dosage: 14 GRAM, 1/WEEK
     Route: 058
  6. HYQVIA [Suspect]
     Active Substance: HUMAN IMMUNOGLOBULIN G\HYALURONIDASE (HUMAN RECOMBINANT)
     Indication: Immunodeficiency common variable
     Dosage: 55 GRAM
     Route: 058
     Dates: start: 20240329
  7. ACETAMINOPHEN [Concomitant]
     Active Substance: ACETAMINOPHEN
     Dosage: UNK
     Route: 065
  8. LEVOTHYROXINE SODIUM [Concomitant]
     Active Substance: LEVOTHYROXINE SODIUM
     Dosage: UNK
     Route: 065
  9. CHOLESTYRAMINE [Concomitant]
     Active Substance: CHOLESTYRAMINE
     Dosage: UNK
     Route: 065
  10. VRAYLAR [Concomitant]
     Active Substance: CARIPRAZINE
     Dosage: UNK
     Route: 065
  11. VITAMIN D3 [Concomitant]
     Active Substance: CHOLECALCIFEROL
     Dosage: UNK
     Route: 065
  12. FETZIMA [Concomitant]
     Active Substance: LEVOMILNACIPRAN HYDROCHLORIDE
     Dosage: UNK
     Route: 065
  13. BUPROPION [Concomitant]
     Active Substance: BUPROPION
     Dosage: UNK
     Route: 065
  14. ACIDOPHILUS [Concomitant]
     Active Substance: LACTOBACILLUS ACIDOPHILUS
     Dosage: UNK
     Route: 065
  15. MONTELUKAST SODIUM [Concomitant]
     Active Substance: MONTELUKAST SODIUM
     Dosage: UNK
     Route: 065
  16. DIPHENHYDRAMINE [Concomitant]
     Active Substance: DIPHENHYDRAMINE
     Dosage: UNK
     Route: 065
  17. Lmx [Concomitant]
     Dosage: UNK
     Route: 065
  18. MAGNESIUM [Concomitant]
     Active Substance: MAGNESIUM
     Dosage: UNK
     Route: 065
  19. ADVAIR HFA [Concomitant]
     Active Substance: FLUTICASONE PROPIONATE\SALMETEROL XINAFOATE
     Dosage: UNK
     Route: 065
  20. EPINEPHRINE [Concomitant]
     Active Substance: EPINEPHRINE
     Dosage: UNK
     Route: 065
  21. PAROXETINE [Concomitant]
     Active Substance: PAROXETINE
     Dosage: UNK
     Route: 065
  22. ZITHROMAX [Concomitant]
     Active Substance: AZITHROMYCIN DIHYDRATE
     Dosage: UNK
     Route: 065
  23. LEVOTHYROXINE [Concomitant]
     Active Substance: LEVOTHYROXINE\LEVOTHYROXINE SODIUM
     Dosage: UNK
     Route: 065
  24. TRINTELLIX [Concomitant]
     Active Substance: VORTIOXETINE HYDROBROMIDE
     Dosage: UNK
     Route: 065
  25. REXULTI [Concomitant]
     Active Substance: BREXPIPRAZOLE
     Dosage: UNK
     Route: 065
  26. SIMVASTATIN [Concomitant]
     Active Substance: SIMVASTATIN
  27. CLONAZEPAM [Concomitant]
     Active Substance: CLONAZEPAM
  28. CYCLOBENZAPRINE HYDROCHLORIDE [Concomitant]
     Active Substance: CYCLOBENZAPRINE HYDROCHLORIDE

REACTIONS (25)
  - Autoimmune disorder [Not Recovered/Not Resolved]
  - Tinea infection [Unknown]
  - Skin infection [Unknown]
  - Bronchitis [Unknown]
  - Neuralgia [Not Recovered/Not Resolved]
  - Arthropod bite [Unknown]
  - Abscess oral [Unknown]
  - Tooth disorder [Unknown]
  - COVID-19 [Unknown]
  - Upper respiratory tract infection [Unknown]
  - Illness [Unknown]
  - Localised infection [Unknown]
  - Attention deficit hyperactivity disorder [Unknown]
  - Fungal infection [Unknown]
  - Tooth infection [Unknown]
  - Influenza [Not Recovered/Not Resolved]
  - Influenza like illness [Unknown]
  - Arthralgia [Not Recovered/Not Resolved]
  - Pain [Not Recovered/Not Resolved]
  - Infusion site swelling [Unknown]
  - Infusion site pain [Recovered/Resolved]
  - Headache [Recovered/Resolved]
  - Back pain [Recovered/Resolved]
  - Product dose omission issue [Unknown]
  - Product use in unapproved indication [Unknown]

NARRATIVE: CASE EVENT DATE: 20200430
